FAERS Safety Report 9833324 (Version 1)
Quarter: 2014Q1

REPORT INFORMATION
  Report Type: Spontaneous
  Country: US (occurrence: US)
  Receive Date: 20140121
  Receipt Date: 20140121
  Transmission Date: 20141002
  Serious: Yes (Other)
  Sender: FDA-Public Use
  Company Number: US-B.I. PHARMACEUTICALS,INC./RIDGEFIELD-2014-BI-01996BP

PATIENT
  Age: 81 Year
  Sex: Female
  Weight: 82 kg

DRUGS (3)
  1. SPIRIVA [Suspect]
     Indication: CHRONIC OBSTRUCTIVE PULMONARY DISEASE
     Dosage: 18 MCG
     Route: 048
     Dates: start: 20140115, end: 20140115
  2. SPIRIVA [Suspect]
     Dosage: 18 MCG
     Route: 055
     Dates: start: 2006
  3. CYMBALTA [Concomitant]
     Route: 048

REACTIONS (2)
  - Transient ischaemic attack [Not Recovered/Not Resolved]
  - Incorrect route of drug administration [Recovered/Resolved]
